FAERS Safety Report 6303676-7 (Version None)
Quarter: 2009Q3

REPORT INFORMATION
  Report Type: 
  Country: None (occurrence: None)
  Receive Date: 20090807
  Receipt Date: 20090807
  Transmission Date: 20100115
  Serious: Yes (Death)
  Sender: FDA-Public Use
  Company Number: None

PATIENT
  Age: 46 Year
  Sex: Female

DRUGS (1)
  1. PROPAFENONE HCL [Suspect]
     Indication: MITRAL VALVE DISEASE
     Dosage: 225MG. BID
     Dates: start: 20080915, end: 20081019

REACTIONS (1)
  - OVERDOSE [None]
